FAERS Safety Report 11524113 (Version 1)
Quarter: 2015Q3

REPORT INFORMATION
  Report Type: Spontaneous
  Country: US (occurrence: US)
  Receive Date: 20150903
  Receipt Date: 20150903
  Transmission Date: 20151125
  Serious: No
  Sender: FDA-Public Use
  Company Number: US-ELI_LILLY_AND_COMPANY-US201002006551

PATIENT
  Sex: Male

DRUGS (2)
  1. LEVEMIR [Concomitant]
     Active Substance: INSULIN DETEMIR
  2. HUMALOG [Suspect]
     Active Substance: INSULIN LISPRO
     Indication: DIABETES MELLITUS
     Dosage: 3 U, 3/D
     Dates: start: 200807

REACTIONS (4)
  - Blood glucose increased [Recovered/Resolved]
  - Expired product administered [Unknown]
  - Blood glucose decreased [Recovered/Resolved]
  - Poor quality drug administered [Unknown]
